FAERS Safety Report 7098303-8 (Version None)
Quarter: 2010Q4

REPORT INFORMATION
  Report Type: 
  Country: None (occurrence: None)
  Receive Date: 20101112
  Receipt Date: 20101104
  Transmission Date: 20110411
  Serious: No
  Sender: FDA-Public Use
  Company Number: US-PFIZER INC-2010141045

PATIENT
  Sex: Male

DRUGS (1)
  1. DILANTIN [Suspect]
     Dosage: 100 MG, 4X/DAY
     Route: 048

REACTIONS (1)
  - FALL [None]
